FAERS Safety Report 16218515 (Version 1)
Quarter: 2019Q2

REPORT INFORMATION
  Report Type: Spontaneous
  Country: US (occurrence: US)
  Receive Date: 20190419
  Receipt Date: 20190419
  Transmission Date: 20190711
  Serious: Yes (Other)
  Sender: FDA-Public Use
  Company Number: US-AMREGENT-20190480

PATIENT
  Age: 20 Year
  Sex: Male
  Weight: 68.5 kg

DRUGS (5)
  1. VENOFER [Suspect]
     Active Substance: IRON SUCROSE
     Dosage: 50 MG, 1 IN 1 WEEK
     Route: 040
  2. CLONIDINE. [Concomitant]
     Active Substance: CLONIDINE
     Dosage: 0.1 MCG, AS REQUIRED
     Route: 065
  3. HECTOROL [Concomitant]
     Active Substance: DOXERCALCIFEROL
     Dosage: UNKNOWN
     Route: 040
  4. MIRCERA [Suspect]
     Active Substance: METHOXY POLYETHYLENE GLYCOL-EPOETIN BETA
     Dosage: 50 MCG, 1 IN 2 WEEKS
     Route: 040
     Dates: start: 20170603, end: 20171007
  5. HEPARIN [Concomitant]
     Active Substance: HEPARIN SODIUM
     Dosage: 1000 IU PER ML, 1 IN 1 HR
     Route: 065

REACTIONS (4)
  - Headache [None]
  - Seizure [Unknown]
  - Hypertension [None]
  - Dizziness [None]

NARRATIVE: CASE EVENT DATE: 2017
